FAERS Safety Report 6158612-3 (Version None)
Quarter: 2009Q2

REPORT INFORMATION
  Report Type: 
  Country: None (occurrence: None)
  Receive Date: 20090408
  Receipt Date: 20090116
  Transmission Date: 20091009
  Serious: Yes (Death)
  Sender: FDA-Public Use
  Company Number: BMS-LI-2009-0012-V001

PATIENT
  Age: 34 Year
  Sex: Female

DRUGS (5)
  1. TRAZODONE HYDROCHLORIDE [Suspect]
  2. AMLODIPINE [Suspect]
  3. AMITRIPTYLINE HYDROCHLORIDE [Suspect]
  4. FLUOXETINE HYDROCHLORIDE [Suspect]
  5. PREGABALIN [Suspect]

REACTIONS (4)
  - CARDIAC ARREST [None]
  - COMPLETED SUICIDE [None]
  - ELECTROMECHANICAL DISSOCIATION [None]
  - RESPIRATORY ARREST [None]
